FAERS Safety Report 6173732-5 (Version None)
Quarter: 2009Q2

REPORT INFORMATION
  Report Type: 
  Country: None (occurrence: None)
  Receive Date: 20090430
  Receipt Date: 20090423
  Transmission Date: 20091009
  Serious: Yes (Other)
  Sender: FDA-Public Use
  Company Number: PHHY2009MX15693

PATIENT
  Sex: Female

DRUGS (3)
  1. ZELNORM [Suspect]
     Indication: IRRITABLE BOWEL SYNDROME
     Dosage: 1 TABLET 6MG PER DAY
     Route: 048
     Dates: start: 20090417, end: 20090422
  2. ZOLTUM [Concomitant]
  3. FLONORM [Concomitant]

REACTIONS (3)
  - ANGINA PECTORIS [None]
  - HYPERTENSION [None]
  - PAIN IN EXTREMITY [None]
